FAERS Safety Report 18273088 (Version 1)
Quarter: 2020Q3

REPORT INFORMATION
  Report Type: Spontaneous
  Country: FR (occurrence: FR)
  Receive Date: 20200916
  Receipt Date: 20200916
  Transmission Date: 20201103
  Serious: Yes (Hospitalization)
  Sender: FDA-Public Use
  Company Number: FR-MYLANLABS-2020M1078233

PATIENT
  Age: 84 Year
  Sex: Male
  Weight: 82 kg

DRUGS (10)
  1. SINTROM [Concomitant]
     Active Substance: ACENOCOUMAROL
     Dosage: UNK (0.5 CP 2 J/3 ET 0.25 CP 1 J/3)
     Route: 048
  2. POLARAMINE [Concomitant]
     Active Substance: DEXCHLORPHENIRAMINE MALEATE
     Indication: PREMEDICATION
     Dosage: 5 MILLIGRAM, TOTAL
     Dates: start: 20200608, end: 20200608
  3. FUROSEMIDE. [Concomitant]
     Active Substance: FUROSEMIDE
     Dosage: 80 MILLIGRAM, QD
     Route: 048
  4. PACLITAXEL. [Suspect]
     Active Substance: PACLITAXEL
     Indication: KAPOSI^S SARCOMA CLASSICAL TYPE
     Dosage: UNK
     Route: 041
     Dates: start: 20170608, end: 20170608
  5. PREDNISONE. [Concomitant]
     Active Substance: PREDNISONE
     Indication: PREMEDICATION
     Dosage: 120 MILLIGRAM, TOTAL
     Dates: start: 20200608, end: 20200608
  6. LASILIX SPECIAL                    /00032601/ [Concomitant]
     Active Substance: FUROSEMIDE
     Dosage: 0.25 DOSAGE FORM, QD
     Route: 048
  7. NEBIVOLOL. [Suspect]
     Active Substance: NEBIVOLOL
     Indication: ARRHYTHMIA
     Dosage: 5 MILLIGRAM, QD
     Route: 048
     Dates: end: 20170608
  8. CALCIDOSE VITAMINE D [Concomitant]
     Active Substance: CALCIUM\CHOLECALCIFEROL
     Dosage: 2 DOSAGE FORM, QD
     Route: 048
  9. CORDARONE [Suspect]
     Active Substance: AMIODARONE HYDROCHLORIDE
     Indication: ARRHYTHMIA
     Dosage: 1 DOSAGE FORM, QD (1 CP/J 5 JOURS SUR 7)
     Route: 048
     Dates: end: 20170608
  10. LANTUS [Concomitant]
     Active Substance: INSULIN GLARGINE
     Dosage: 18 INTERNATIONAL UNIT, QD
     Route: 058

REACTIONS (3)
  - Atrioventricular block [Recovered/Resolved]
  - Bundle branch block [Recovered/Resolved]
  - Atrial tachycardia [Recovered/Resolved]

NARRATIVE: CASE EVENT DATE: 201707
